FAERS Safety Report 7423614-3 (Version None)
Quarter: 2011Q2

REPORT INFORMATION
  Report Type: 
  Country: None (occurrence: None)
  Receive Date: 20110413
  Receipt Date: 20110413
  Transmission Date: 20111010
  Serious: Yes (Other)
  Sender: FDA-Public Use
  Company Number: None

PATIENT
  Sex: Female
  Weight: 64.4108 kg

DRUGS (3)
  1. PACLITAXEL [Suspect]
     Indication: LARYNGEAL CANCER
     Dosage: TOTAL 60MG Q WEEK IV
     Dates: start: 20110311
  2. PACLITAXEL [Suspect]
     Indication: LARYNGEAL CANCER
     Dosage: TOTAL 60MG Q WEEK IV
     Dates: start: 20110315
  3. PACLITAXEL [Suspect]
     Indication: LARYNGEAL CANCER
     Dosage: TOTAL 60MG Q WEEK IV
     Dates: start: 20110308

REACTIONS (3)
  - BLOOD PRESSURE SYSTOLIC [None]
  - CHEST PAIN [None]
  - FLUSHING [None]
